FAERS Safety Report 22052955 (Version 2)
Quarter: 2025Q2

REPORT INFORMATION
  Report Type: Spontaneous
  Country: AU (occurrence: AU)
  Receive Date: 20230302
  Receipt Date: 20250620
  Transmission Date: 20250717
  Serious: Yes (Other)
  Sender: ORGANON
  Company Number: AU-ORGANON-O2302AUS002258

PATIENT
  Sex: Female

DRUGS (3)
  1. ORGALUTRAN [Suspect]
     Active Substance: GANIRELIX ACETATE
  2. GONAL-F [Suspect]
     Active Substance: FOLLITROPIN
  3. OVIDREL [Suspect]
     Active Substance: CHORIOGONADOTROPIN ALFA

REACTIONS (3)
  - Hyperkalaemia [Unknown]
  - Haemoconcentration [Unknown]
  - Vomiting [Unknown]
